FAERS Safety Report 5542383-5 (Version None)
Quarter: 2007Q4

REPORT INFORMATION
  Report Type: 
  Country: None (occurrence: None)
  Receive Date: 20071210
  Receipt Date: 20061218
  Transmission Date: 20080405
  Serious: No
  Sender: FDA-Public Use
  Company Number: US-AMGEN-KDL203164

PATIENT
  Sex: Female

DRUGS (2)
  1. ENBREL [Suspect]
     Indication: PSORIATIC ARTHROPATHY
     Route: 058
     Dates: start: 20000901, end: 20061211
  2. ENBREL [Suspect]
     Indication: PSORIASIS

REACTIONS (5)
  - BASAL CELL CARCINOMA [None]
  - FATIGUE [None]
  - PSORIASIS [None]
  - SINUSITIS [None]
  - WOUND INFECTION STAPHYLOCOCCAL [None]
